FAERS Safety Report 8159055-3 (Version None)
Quarter: 2012Q1

REPORT INFORMATION
  Report Type: 
  Country: None (occurrence: None)
  Receive Date: 20120103
  Receipt Date: 20111102
  Transmission Date: 20120608
  Serious: No
  Sender: FDA-Public Use
  Company Number: AE-2011-002981

PATIENT
  Age: 59 Year
  Sex: Male
  Weight: 82.5547 kg

DRUGS (10)
  1. OXYCODONE HCL [Concomitant]
  2. INCIVEK [Suspect]
     Dosage: 6 DOSAGE FORMS (2 DOSAGE FORMS, 3 IN 1 D), ORAL
     Route: 048
     Dates: start: 20110913
  3. PHENERGAN HCL [Concomitant]
  4. RESTERIL (TEMAZEPAM) [Concomitant]
  5. MELATONIN (MELATONIN) [Concomitant]
  6. RIBASPHERE [Concomitant]
  7. ATIVAN (LORAZEPAM0 [Concomitant]
  8. PEGASYS [Concomitant]
  9. SOMA [Concomitant]
  10. PRISTIQ [Concomitant]

REACTIONS (8)
  - VOMITING [None]
  - DYSPNOEA [None]
  - CRYING [None]
  - DIARRHOEA [None]
  - CONFUSIONAL STATE [None]
  - LYMPHADENOPATHY [None]
  - PYREXIA [None]
  - NAUSEA [None]
